FAERS Safety Report 23776025 (Version 1)
Quarter: 2024Q2

REPORT INFORMATION
  Report Type: Spontaneous
  Country: CN (occurrence: CN)
  Receive Date: 20240424
  Receipt Date: 20240424
  Transmission Date: 20240717
  Serious: Yes (Hospitalization)
  Sender: FDA-Public Use
  Company Number: CN-NOVOPROD-1207924

PATIENT
  Age: 64 Year
  Sex: Female
  Weight: 72 kg

DRUGS (12)
  1. TRESIBA [Suspect]
     Active Substance: INSULIN DEGLUDEC
     Dosage: UNK (DOSE REDUCED)
     Route: 058
     Dates: start: 2023, end: 20231113
  2. TRESIBA [Suspect]
     Active Substance: INSULIN DEGLUDEC
     Indication: Type 2 diabetes mellitus
     Dosage: UNK
     Route: 058
     Dates: start: 20221114
  3. ASPIRIN [Concomitant]
     Active Substance: ASPIRIN
     Indication: Antiplatelet therapy
     Dosage: UNK
  4. METOPROLOL TARTRATE [Concomitant]
     Active Substance: METOPROLOL TARTRATE
     Dosage: UNK
     Dates: start: 200701
  5. EUTHYROX [Concomitant]
     Active Substance: LEVOTHYROXINE SODIUM
     Dates: start: 20091130
  6. AMLODIPINE BESYLATE [Concomitant]
     Active Substance: AMLODIPINE BESYLATE
     Indication: Hypertension
     Dates: start: 20090607
  7. IRBESARTAN [Concomitant]
     Active Substance: IRBESARTAN
     Indication: Hypertension
     Dates: start: 20090607
  8. FENOFIBRATE [Concomitant]
     Active Substance: FENOFIBRATE
     Dates: start: 20230101
  9. ACARBOSE [Concomitant]
     Active Substance: ACARBOSE
     Dates: start: 20091012
  10. LIRAGLUTIDE [Concomitant]
     Active Substance: LIRAGLUTIDE
     Indication: Type 2 diabetes mellitus
     Dates: start: 20210621
  11. GLIMEPIRIDE [Concomitant]
     Active Substance: GLIMEPIRIDE
     Indication: Type 2 diabetes mellitus
     Dates: start: 20211012
  12. ATORVASTATIN [Concomitant]
     Active Substance: ATORVASTATIN
     Indication: Lipids increased
     Dosage: UNK

REACTIONS (3)
  - Pneumonia [Recovered/Resolved]
  - Hypoglycaemic coma [Recovered/Resolved]
  - Urinary tract infection [Unknown]

NARRATIVE: CASE EVENT DATE: 20230603
